FAERS Safety Report 10517646 (Version 1)
Quarter: 2014Q4

REPORT INFORMATION
  Report Type: Spontaneous
  Country: FR (occurrence: FR)
  Receive Date: 20141014
  Receipt Date: 20141014
  Transmission Date: 20150528
  Serious: Yes (Death, Congenital Anomaly, Other)
  Sender: FDA-Public Use
  Company Number: FR-ABBVIE-14P-056-1295450-00

PATIENT
  Age: 1 Day
  Sex: Male

DRUGS (5)
  1. DEPAKINE CHRONO [Suspect]
     Active Substance: VALPROATE SODIUM
     Indication: MATERNAL EXPOSURE TIMING UNSPECIFIED
     Route: 064
  2. GLUCOSE [Concomitant]
     Active Substance: DEXTROSE
     Indication: PRODUCT USED FOR UNKNOWN INDICATION
  3. INSULIN [Concomitant]
     Active Substance: INSULIN NOS
     Indication: PRODUCT USED FOR UNKNOWN INDICATION
  4. LASILIX [Concomitant]
     Active Substance: FUROSEMIDE
     Indication: PRODUCT USED FOR UNKNOWN INDICATION
  5. FASTURTEC [Concomitant]
     Active Substance: RASBURICASE
     Indication: PRODUCT USED FOR UNKNOWN INDICATION

REACTIONS (18)
  - Acute myeloid leukaemia [Fatal]
  - Talipes [Unknown]
  - Lung disorder [Unknown]
  - Inferior vena cava dilatation [Unknown]
  - Disseminated intravascular coagulation [Fatal]
  - Tricuspid valve incompetence [Unknown]
  - Heart disease congenital [Unknown]
  - Congenital renal disorder [Unknown]
  - Superior vena cava dilatation [Unknown]
  - Foetal exposure during pregnancy [Unknown]
  - Nipple disorder [Unknown]
  - Hepatomegaly [Unknown]
  - Respiratory distress [Unknown]
  - Urinary tract disorder [Unknown]
  - Mitral valve incompetence [Unknown]
  - Gastrointestinal disorder congenital [Unknown]
  - Splenomegaly [Unknown]
  - Dysmorphism [Unknown]

NARRATIVE: CASE EVENT DATE: 2014
